FAERS Safety Report 6164634-9 (Version None)
Quarter: 2009Q2

REPORT INFORMATION
  Report Type: 
  Country: None (occurrence: None)
  Receive Date: 20090421
  Receipt Date: 20090406
  Transmission Date: 20091009
  Serious: Yes (Hospitalization, Other)
  Sender: FDA-Public Use
  Company Number: 2009000751

PATIENT
  Age: 53 Year
  Sex: Female

DRUGS (12)
  1. TARCEVA [Suspect]
     Indication: LUNG CANCER METASTATIC
     Dosage: 100 MG, QD, ORAL
     Route: 048
     Dates: start: 20090126, end: 20090226
  2. MORPHINE [Concomitant]
  3. BENZODIAZEPINES [Concomitant]
  4. CORTICOSTEROIDS (CORTICOSTEROIDS) [Concomitant]
  5. LEVOTHYROXINE SODIUM [Concomitant]
  6. MORPHINE SULFATE [Concomitant]
  7. LYTOS (CLODRONATE SODIUM) [Concomitant]
  8. PREGABALIN [Concomitant]
  9. AMITRIPTYLINE HYDROCHLORIDE [Concomitant]
  10. ALAPRAZOLAM (ALPRAZOLAM) [Concomitant]
  11. EFFEXOR [Concomitant]
  12. PREDNISOLONE [Concomitant]

REACTIONS (1)
  - PERIPHERAL ISCHAEMIA [None]
